FAERS Safety Report 5766706-7 (Version None)
Quarter: 2008Q2

REPORT INFORMATION
  Report Type: 
  Country: None (occurrence: None)
  Receive Date: 20080610
  Receipt Date: 20080610
  Transmission Date: 20081010
  Serious: No
  Sender: FDA-Public Use
  Company Number: None

PATIENT
  Age: 49 Year
  Sex: Female
  Weight: 72.5755 kg

DRUGS (1)
  1. LYRICA [Suspect]
     Indication: FIBROMYALGIA
     Dosage: 50 MG OR 25 MG -ALTERNATED- 1X DAILY AT BEDTIM BUCCAL
     Route: 002
     Dates: start: 20080301, end: 20080530

REACTIONS (7)
  - ANGIOEDEMA [None]
  - DRUG HYPERSENSITIVITY [None]
  - ERYTHEMA [None]
  - MUSCLE SPASMS [None]
  - MYALGIA [None]
  - OEDEMA PERIPHERAL [None]
  - PRURITUS [None]
